FAERS Safety Report 5657205-1 (Version None)
Quarter: 2008Q1

REPORT INFORMATION
  Report Type: 
  Country: None (occurrence: None)
  Receive Date: 20080310
  Receipt Date: 20080304
  Transmission Date: 20080703
  Serious: Yes (Hospitalization)
  Sender: FDA-Public Use
  Company Number: GR-AVENTIS-200812057GDDC

PATIENT
  Age: 55 Year
  Sex: Female

DRUGS (4)
  1. ARAVA [Suspect]
     Dosage: DOSE: UNK
     Dates: end: 20080201
  2. ISONIAZID [Suspect]
     Dosage: DOSE: UNK
     Dates: start: 20080101
  3. B6 [Concomitant]
     Dosage: DOSE: UNK
     Dates: start: 20080101
  4. HUMIRA [Concomitant]
     Dosage: DOSE: UNK
     Dates: start: 20080101

REACTIONS (1)
  - HEPATITIS [None]
